FAERS Safety Report 8345316-1 (Version None)
Quarter: 2012Q2

REPORT INFORMATION
  Report Type: 
  Country: None (occurrence: None)
  Receive Date: 20120508
  Receipt Date: 20120504
  Transmission Date: 20120825
  Serious: Yes (Life-Threatening, Hospitalization, Other)
  Sender: FDA-Public Use
  Company Number: GB-MUTUAL PHARMACEUTICAL COMPANY, INC.-TMDL20120004

PATIENT
  Age: 56 Year
  Sex: Male

DRUGS (4)
  1. FLUTICASONE PROPIONATE/SALMETEROL [Concomitant]
     Indication: CHRONIC OBSTRUCTIVE PULMONARY DISEASE
  2. CO-DYDRAMOL 10 MG/500 MG [Suspect]
     Route: 048
  3. TRAMADOL HCL [Suspect]
     Route: 048
  4. SPIRIVA [Concomitant]
     Indication: CHRONIC OBSTRUCTIVE PULMONARY DISEASE

REACTIONS (9)
  - BLOOD PRESSURE SYSTOLIC INCREASED [None]
  - HYPONATRAEMIA [None]
  - SOMNOLENCE [None]
  - RESPIRATORY FAILURE [None]
  - HEART RATE INCREASED [None]
  - INAPPROPRIATE ANTIDIURETIC HORMONE SECRETION [None]
  - MIOSIS [None]
  - INTENTIONAL OVERDOSE [None]
  - BLOOD CREATININE DECREASED [None]
